FAERS Safety Report 8224228-8 (Version None)
Quarter: 2012Q1

REPORT INFORMATION
  Report Type: 
  Country: None (occurrence: None)
  Receive Date: 20120321
  Receipt Date: 20120312
  Transmission Date: 20120608
  Serious: Yes (Hospitalization, Disabling)
  Sender: FDA-Public Use
  Company Number: US-NOVOPROD-345775

PATIENT
  Age: 22 Year
  Sex: Female
  Weight: 99.773 kg

DRUGS (5)
  1. LANTUS [Concomitant]
     Indication: TYPE 1 DIABETES MELLITUS
     Dosage: 15 U, AT BEDTIME
     Route: 058
  2. IBUPROFEN [Concomitant]
     Indication: PRODUCT USED FOR UNKNOWN INDICATION
     Dosage: UNK, PRN
  3. WELLBUTRIN [Concomitant]
     Indication: PRODUCT USED FOR UNKNOWN INDICATION
  4. RISPERDAL [Concomitant]
     Indication: PRODUCT USED FOR UNKNOWN INDICATION
  5. NOVOLOG [Suspect]
     Indication: TYPE 1 DIABETES MELLITUS
     Dosage: UNKNOWN
     Route: 058
     Dates: start: 20020101

REACTIONS (3)
  - CEREBROVASCULAR ACCIDENT [None]
  - BLINDNESS [None]
  - DIABETIC KETOACIDOTIC HYPERGLYCAEMIC COMA [None]
